FAERS Safety Report 13745049 (Version 1)
Quarter: 2017Q3

REPORT INFORMATION
  Report Type: Spontaneous
  Country: US (occurrence: US)
  Receive Date: 20170711
  Receipt Date: 20170711
  Transmission Date: 20171127
  Serious: No
  Sender: FDA-Public Use
  Company Number: None

PATIENT
  Age: 43 Year
  Sex: Female
  Weight: 58.5 kg

DRUGS (1)
  1. KOLONIPIN [Suspect]
     Active Substance: CLONAZEPAM
     Indication: PALPITATIONS
     Route: 048

REACTIONS (18)
  - Depression [None]
  - Feeling abnormal [None]
  - Loss of personal independence in daily activities [None]
  - Agoraphobia [None]
  - Memory impairment [None]
  - Derealisation [None]
  - Suicidal ideation [None]
  - Hallucinations, mixed [None]
  - Akathisia [None]
  - Lethargy [None]
  - Headache [None]
  - Homicidal ideation [None]
  - Withdrawal syndrome [None]
  - Hypertension [None]
  - Depersonalisation/derealisation disorder [None]
  - Impaired work ability [None]
  - Speech disorder [None]
  - Impaired driving ability [None]

NARRATIVE: CASE EVENT DATE: 20070101
